FAERS Safety Report 14227422 (Version 1)
Quarter: 2017Q4

REPORT INFORMATION
  Report Type: Spontaneous
  Country: FR (occurrence: FR)
  Receive Date: 20171127
  Receipt Date: 20171127
  Transmission Date: 20180321
  Serious: Yes (Hospitalization, Other)
  Sender: FDA-Public Use
  Company Number: FR-NAPPMUNDI-GBR-2017-0050872

PATIENT

DRUGS (13)
  1. PREVISCAN                          /00261401/ [Suspect]
     Active Substance: PENTOXIFYLLINE
     Indication: PRODUCT USED FOR UNKNOWN INDICATION
     Dosage: UNK
     Route: 065
  2. PYOSTACINE [Suspect]
     Active Substance: PRISTINAMYCIN
     Indication: ERYSIPELAS
     Dosage: UNK
     Route: 048
     Dates: start: 20170925
  3. PARACETAMOL [Concomitant]
     Active Substance: ACETAMINOPHEN
  4. PERINDOPRIL [Concomitant]
     Active Substance: PERINDOPRIL
  5. CETIRIZINE DI-HCL [Concomitant]
  6. PYOSTACINE [Suspect]
     Active Substance: PRISTINAMYCIN
     Indication: PYREXIA
     Dosage: UNK
     Route: 048
     Dates: start: 20170911, end: 20170918
  7. FLECTOR                            /00372302/ [Concomitant]
     Active Substance: DICLOFENAC SODIUM
  8. OXYCONTIN [Suspect]
     Active Substance: OXYCODONE HYDROCHLORIDE
     Indication: ARTHRALGIA
  9. OXYCONTIN [Suspect]
     Active Substance: OXYCODONE HYDROCHLORIDE
     Indication: BACK PAIN
     Dosage: 1 DF, BID  [5MG STRENGTH]
     Route: 048
     Dates: start: 20170824, end: 20170928
  10. AMLODIPINE [Concomitant]
     Active Substance: AMLODIPINE BESYLATE
  11. AUGMENTIN [Suspect]
     Active Substance: AMOXICILLIN\CLAVULANATE POTASSIUM
     Indication: ERYSIPELAS
     Dosage: UNK
     Route: 048
     Dates: start: 20170920, end: 20170922
  12. NOCTAMIDE [Suspect]
     Active Substance: LORMETAZEPAM
     Indication: PRODUCT USED FOR UNKNOWN INDICATION
     Dosage: 1 MG, DAILY
     Route: 065
     Dates: start: 20170911, end: 20170926
  13. SERESTA [Concomitant]
     Active Substance: OXAZEPAM

REACTIONS (4)
  - Eosinophilia [Recovering/Resolving]
  - Rash maculo-papular [Recovering/Resolving]
  - Overdose [Unknown]
  - Rash pruritic [Recovering/Resolving]

NARRATIVE: CASE EVENT DATE: 20170922
